FAERS Safety Report 7002087-9 (Version None)
Quarter: 2010Q3

REPORT INFORMATION
  Report Type: 
  Country: None (occurrence: None)
  Receive Date: 20100920
  Receipt Date: 20100217
  Transmission Date: 20110219
  Serious: Yes (Other)
  Sender: FDA-Public Use
  Company Number: US-ASTRAZENECA-2008UW27632

PATIENT
  Sex: Female

DRUGS (7)
  1. SEROQUEL [Suspect]
     Dosage: 25 MG TO 300 MG
     Route: 048
     Dates: start: 20051007
  2. AMBIEN [Concomitant]
     Dates: start: 20050924
  3. OXYCODONE HCL [Concomitant]
     Dates: start: 20051004
  4. LORAZEPAM [Concomitant]
     Dates: start: 20051007
  5. BUPROPION HCL [Concomitant]
     Dates: start: 20051215
  6. EFFEXOR XR [Concomitant]
     Dates: start: 20051215
  7. LEVOTHYROXINE SODIUM [Concomitant]
     Dates: start: 20051221

REACTIONS (3)
  - DIABETES MELLITUS [None]
  - KETOACIDOSIS [None]
  - PANCREATITIS [None]
